FAERS Safety Report 7458092-1 (Version None)
Quarter: 2011Q2

REPORT INFORMATION
  Report Type: 
  Country: None (occurrence: None)
  Receive Date: 20110504
  Receipt Date: 20110428
  Transmission Date: 20111010
  Serious: Yes (Other)
  Sender: FDA-Public Use
  Company Number: US-GENZYME-FLUD-1000877

PATIENT

DRUGS (12)
  1. CYCLOPHOSPHAMIDE [Suspect]
     Indication: PREMEDICATION
     Dosage: 60 MG/KG, QD ON DAY -6
     Route: 042
  2. RITUXIMAB [Suspect]
     Dosage: 375 MG/M2 ON DAY +15
     Route: 042
  3. PROLEUKIN [Concomitant]
     Dosage: 10 X10E6 UNITS EVERY OTHER DAY
     Route: 058
  4. PROLEUKIN [Concomitant]
     Indication: PREMEDICATION
     Dosage: 10 X 10E6 UNITS EVERY OTHER DAY
     Route: 058
  5. PROLEUKIN [Concomitant]
     Dosage: 10 X 10E6 UNITS EVERY OTHER DAY
     Route: 058
  6. PROLEUKIN [Concomitant]
     Dosage: 10 X 10E6 UNITS EVERY OTHER DAY
     Route: 058
  7. FLUDARA [Suspect]
     Indication: PREMEDICATION
     Dosage: 25 MG/M2, QD ON DAYS -6 TO -2
     Route: 042
  8. RITUXIMAB [Suspect]
     Dosage: 375 MG/M2 ON DAY +6
     Route: 042
  9. RITUXIMAB [Suspect]
     Dosage: 375 MG/M2 ON DAY -1
     Route: 042
  10. PROLEUKIN [Concomitant]
     Dosage: 10 X 10E6 UNITS EVERY OTHER DAY
     Route: 058
  11. RITUXIMAB [Suspect]
     Indication: CELL-MEDIATED CYTOTOXICITY
     Dosage: 375 MG/M2 ON DAY -8
     Route: 042
  12. PROLEUKIN [Concomitant]
     Dosage: 10 X 10E6 UNITS EVERY OTHER DAY
     Route: 058

REACTIONS (8)
  - LUNG INFILTRATION [None]
  - NEUTROPENIA [None]
  - OBSTRUCTIVE AIRWAYS DISORDER [None]
  - HYPERTENSION [None]
  - EXTRASYSTOLES [None]
  - ELECTROLYTE IMBALANCE [None]
  - SEPSIS [None]
  - THROMBOCYTOPENIA [None]
